FAERS Safety Report 11503278 (Version 2)
Quarter: 2016Q3

REPORT INFORMATION
  Report Type: Spontaneous
  Country: US (occurrence: US)
  Receive Date: 20150914
  Receipt Date: 20160915
  Transmission Date: 20161109
  Serious: No
  Sender: FDA-Public Use
  Company Number: US-ASTELLAS-2015US026003

PATIENT
  Sex: Male

DRUGS (2)
  1. XTANDI [Suspect]
     Active Substance: ENZALUTAMIDE
     Indication: PROSTATE CANCER
     Route: 048
     Dates: start: 20150626
  2. XTANDI [Suspect]
     Active Substance: ENZALUTAMIDE
     Indication: METASTASIS

REACTIONS (12)
  - Dizziness [Unknown]
  - Weight decreased [Unknown]
  - Dementia [Unknown]
  - Headache [Unknown]
  - Dyspnoea [Unknown]
  - Constipation [Unknown]
  - Incorrect product storage [Unknown]
  - Fatigue [Unknown]
  - Asthenia [Unknown]
  - Insomnia [Unknown]
  - Hypertension [Unknown]
  - Decreased appetite [Unknown]
